FAERS Safety Report 6501144-0 (Version None)
Quarter: 2009Q4

REPORT INFORMATION
  Report Type: 
  Country: None (occurrence: None)
  Receive Date: 20091216
  Receipt Date: 20090814
  Transmission Date: 20100525
  Serious: No
  Sender: FDA-Public Use
  Company Number: A0802253A

PATIENT
  Age: 51 Year
  Sex: Female

DRUGS (1)
  1. COMMIT [Suspect]
     Dates: start: 20090814, end: 20090814

REACTIONS (7)
  - CONDITION AGGRAVATED [None]
  - CYST [None]
  - EYE IRRITATION [None]
  - FEELING ABNORMAL [None]
  - HEADACHE [None]
  - ORAL DISCOMFORT [None]
  - PALPITATIONS [None]
